FAERS Safety Report 4753473-9 (Version None)
Quarter: 2005Q3

REPORT INFORMATION
  Report Type: 
  Country: None (occurrence: None)
  Receive Date: 20050824
  Receipt Date: 20050812
  Transmission Date: 20060218
  Serious: Yes (Hospitalization, Other)
  Sender: FDA-Public Use
  Company Number: 2005115926

PATIENT
  Age: 59 Year
  Sex: Male

DRUGS (1)
  1. CAMPTOSAR [Suspect]
     Indication: COLON CANCER STAGE I
     Dosage: INTRAVENOUS
     Route: 042

REACTIONS (1)
  - CYSTITIS HAEMORRHAGIC [None]
